FAERS Safety Report 13171383 (Version 1)
Quarter: 2017Q1

REPORT INFORMATION
  Report Type: Spontaneous
  Country: US (occurrence: US)
  Receive Date: 20170201
  Receipt Date: 20170201
  Transmission Date: 20170428
  Serious: No
  Sender: FDA-Public Use
  Company Number: US-CIPLA LTD.-2016US19184

PATIENT

DRUGS (1)
  1. IPRATROPIUM/ALBUTEROL [Suspect]
     Active Substance: ALBUTEROL\IPRATROPIUM
     Dosage: 0.5MG AND 3MG/3ML, 1 VIAL EVERY SIX HOURS
     Dates: start: 20160824

REACTIONS (2)
  - Product odour abnormal [Unknown]
  - Device use error [Unknown]
